FAERS Safety Report 6919616-3 (Version None)
Quarter: 2010Q3

REPORT INFORMATION
  Report Type: 
  Country: None (occurrence: None)
  Receive Date: 20100811
  Receipt Date: 20100803
  Transmission Date: 20110219
  Serious: Yes (Hospitalization, Other)
  Sender: FDA-Public Use
  Company Number: DE-BAYER-201035438GPV

PATIENT
  Sex: Female

DRUGS (1)
  1. DROSPIRENONE AND ETHINYL ESTRADIOL [Suspect]
     Indication: PRODUCT USED FOR UNKNOWN INDICATION
     Route: 048

REACTIONS (3)
  - DYSPNOEA [None]
  - PAIN [None]
  - PULMONARY EMBOLISM [None]
